FAERS Safety Report 18527845 (Version 2)
Quarter: 2020Q4

REPORT INFORMATION
  Report Type: Report from Study
  Country: CA (occurrence: CA)
  Receive Date: 20201120
  Receipt Date: 20201123
  Transmission Date: 20210114
  Serious: Yes (Other)
  Sender: FDA-Public Use
  Company Number: CA-JNJFOC-20201041803

PATIENT
  Age: 5 Year
  Sex: Female

DRUGS (1)
  1. REMICADE [Suspect]
     Active Substance: INFLIXIMAB
     Indication: UVEITIS
     Dosage: ON 12-NOV-2020, PATIENT RECEIVED 100 MG 13TH INFLIXIMAB INFUSION
     Route: 042
     Dates: start: 20191220

REACTIONS (3)
  - Off label use [Unknown]
  - Product use in unapproved indication [Unknown]
  - Uveitis [Unknown]

NARRATIVE: CASE EVENT DATE: 20191220
